FAERS Safety Report 11673252 (Version 3)
Quarter: 2015Q4

REPORT INFORMATION
  Report Type: Spontaneous
  Country: US (occurrence: US)
  Receive Date: 20151027
  Receipt Date: 20151110
  Transmission Date: 20160304
  Serious: No
  Sender: FDA-Public Use
  Company Number: US-ELI_LILLY_AND_COMPANY-US201003005297

PATIENT
  Sex: Female

DRUGS (20)
  1. FORTEO [Suspect]
     Active Substance: TERIPARATIDE
     Dosage: 20 UG, QD
     Route: 065
     Dates: start: 201101
  2. FUROSEMIDE. [Concomitant]
     Active Substance: FUROSEMIDE
  3. FORTEO [Suspect]
     Active Substance: TERIPARATIDE
     Indication: OSTEOPOROSIS
     Dosage: 20 UG, QD
     Route: 065
     Dates: start: 201001, end: 201006
  4. SPIRIVA [Concomitant]
     Active Substance: TIOTROPIUM BROMIDE MONOHYDRATE
  5. SIMVASTATIN. [Concomitant]
     Active Substance: SIMVASTATIN
  6. VITAMIN D3 [Concomitant]
     Active Substance: CHOLECALCIFEROL
  7. FORTEO [Suspect]
     Active Substance: TERIPARATIDE
     Dosage: 20 UG, QD
     Route: 065
     Dates: end: 20110613
  8. NEXIUM [Concomitant]
     Active Substance: ESOMEPRAZOLE MAGNESIUM
  9. ALPHA LIPOIC ACID [Concomitant]
     Active Substance: .ALPHA.-LIPOIC ACID
     Dosage: UNK
  10. MULTIVITAMIN [Concomitant]
     Active Substance: VITAMINS
  11. FORTEO [Suspect]
     Active Substance: TERIPARATIDE
     Dosage: 20 UG, QD
     Route: 065
  12. CALCIUM [Concomitant]
     Active Substance: CALCIUM
  13. ALBUTEROL. [Concomitant]
     Active Substance: ALBUTEROL
  14. AZELASTINE [Concomitant]
     Active Substance: AZELASTINE
  15. COZAAR [Concomitant]
     Active Substance: LOSARTAN POTASSIUM
  16. VITAMIN C [Concomitant]
     Active Substance: ASCORBIC ACID
  17. FORTEO [Suspect]
     Active Substance: TERIPARATIDE
     Dosage: 20 UG, QD
     Route: 065
  18. FORTEO [Suspect]
     Active Substance: TERIPARATIDE
     Dosage: 20 UG, QD
     Dates: start: 20110925
  19. FORTEO [Suspect]
     Active Substance: TERIPARATIDE
     Dosage: 20 UG, QD
  20. NASACOR [Concomitant]
     Indication: NASAL DISORDER

REACTIONS (15)
  - Fatigue [Unknown]
  - Pain in extremity [Unknown]
  - Radiation skin injury [Unknown]
  - Asthenia [Unknown]
  - Injection site pain [Unknown]
  - Malaise [Unknown]
  - Limb injury [Unknown]
  - Upper-airway cough syndrome [Unknown]
  - Fatigue [Recovered/Resolved]
  - Fall [Unknown]
  - Dysphonia [Unknown]
  - Myalgia [Unknown]
  - Weight increased [Unknown]
  - Blood calcium increased [Unknown]
  - Drug dose omission [Unknown]

NARRATIVE: CASE EVENT DATE: 2010
